FAERS Safety Report 7469543-0 (Version None)
Quarter: 2011Q2

REPORT INFORMATION
  Report Type: 
  Country: None (occurrence: None)
  Receive Date: 20110510
  Receipt Date: 20110428
  Transmission Date: 20111010
  Serious: Yes (Other)
  Sender: FDA-Public Use
  Company Number: PHFR2011GB02852

PATIENT
  Age: 80 Year
  Sex: Female
  Weight: 75 kg

DRUGS (6)
  1. CARBAMAZEPINE [Suspect]
     Indication: TRIGEMINAL NEURALGIA
     Dosage: 200 MG, QID
     Route: 048
  2. PROPRANOLOL [Concomitant]
     Indication: ANXIETY
     Dosage: 40 MG, QD
     Route: 048
  3. MIRTAZAPINE [Suspect]
     Indication: DEPRESSION
     Dosage: 45 MG, QD
     Route: 048
     Dates: start: 20110101, end: 20110310
  4. CLONAZEPAM [Concomitant]
     Indication: ANXIETY
     Dosage: 500 UG, QD
     Route: 048
     Dates: start: 20110201
  5. ADCAL-D3 [Concomitant]
     Indication: OSTEOPOROSIS
     Dosage: 1 DF, BID
     Route: 048
  6. PENTASA [Concomitant]
     Indication: INFLAMMATORY BOWEL DISEASE
     Dosage: 1 G, TID
     Route: 048

REACTIONS (1)
  - NEUTROPENIA [None]
